FAERS Safety Report 20011941 (Version 3)
Quarter: 2021Q4

REPORT INFORMATION
  Report Type: Spontaneous
  Country: DE (occurrence: DE)
  Receive Date: 20211029
  Receipt Date: 20211104
  Transmission Date: 20220303
  Serious: Yes (Life-Threatening, Hospitalization, Other)
  Sender: FDA-Public Use
  Company Number: DE-ADRED-06819-01

PATIENT
  Age: 56 Year
  Sex: Female
  Weight: 105 kg

DRUGS (2)
  1. INSULIN GLARGINE [Suspect]
     Active Substance: INSULIN GLARGINE
     Indication: Product used for unknown indication
     Dosage: 1 IU, NK [PRESUMABLY NOT KNOWN], PREFILLED SYRINGES
     Route: 058
  2. INSULIN LISPRO [Suspect]
     Active Substance: INSULIN LISPRO
     Indication: Product used for unknown indication
     Dosage: 1 IU, NK [PRESUMABLY NOT KNOWN], PREFILLED SYRINGES
     Route: 058

REACTIONS (6)
  - Condition aggravated [Unknown]
  - Dyspnoea [Unknown]
  - Hypoxia [Unknown]
  - Cough [Unknown]
  - Acute respiratory failure [Unknown]
  - Product administration error [Unknown]
